FAERS Safety Report 9661319 (Version 2)
Quarter: 2014Q1

REPORT INFORMATION
  Report Type: Spontaneous
  Country: IT (occurrence: IT)
  Receive Date: 20131031
  Receipt Date: 20140328
  Transmission Date: 20141002
  Serious: Yes (Hospitalization)
  Sender: FDA-Public Use
  Company Number: IT-ROCHE-1295689

PATIENT
  Age: 50 Year
  Sex: Female
  Weight: 55 kg

DRUGS (4)
  1. XELODA [Suspect]
     Indication: COLON NEOPLASM
     Route: 048
     Dates: start: 20120322, end: 20130701
  2. XELODA [Suspect]
     Dosage: DOSE REDUCED BY 50%.
     Route: 048
     Dates: start: 20130515, end: 20130701
  3. OXALIPLATIN [Suspect]
     Indication: COLON NEOPLASM
     Route: 042
     Dates: start: 20120322, end: 20130514
  4. OXALIPLATIN [Suspect]
     Dosage: DOSE REDUCED BY 50%.
     Route: 042
     Dates: start: 20130515, end: 20130701

REACTIONS (2)
  - Gastrointestinal disorder [Recovered/Resolved]
  - Asthenia [Recovered/Resolved]
